FAERS Safety Report 5568536-8 (Version None)
Quarter: 2007Q4

REPORT INFORMATION
  Report Type: 
  Country: None (occurrence: None)
  Receive Date: 20071130
  Receipt Date: 20070307
  Transmission Date: 20080405
  Serious: Yes (Other)
  Sender: FDA-Public Use
  Company Number: WAES 0610USA00282

PATIENT
  Sex: Female

DRUGS (2)
  1. FOSAMAX [Suspect]
     Dosage: PO
     Route: 048
     Dates: start: 19980801
  2. FOSAMAX [Suspect]
     Dosage: PO
     Route: 048
     Dates: start: 20010601, end: 20060101

REACTIONS (1)
  - OSTEONECROSIS [None]
